FAERS Safety Report 17752804 (Version 1)
Quarter: 2020Q2

REPORT INFORMATION
  Report Type: Spontaneous
  Country: FR (occurrence: FR)
  Receive Date: 20200506
  Receipt Date: 20200506
  Transmission Date: 20200714
  Serious: Yes (Other)
  Sender: FDA-Public Use
  Company Number: FR-MYLANLABS-2020M1045209

PATIENT
  Age: 65 Year
  Sex: Male

DRUGS (3)
  1. TECENTRIQ [Suspect]
     Active Substance: ATEZOLIZUMAB
     Indication: METASTATIC BRONCHIAL CARCINOMA
     Dosage: 1200 MILLIGRAM, CYCLE
     Route: 042
     Dates: start: 20200214, end: 20200330
  2. ETOPOSIDE MYLAN [Suspect]
     Active Substance: ETOPOSIDE
     Indication: METASTATIC BRONCHIAL CARCINOMA
     Dosage: 600 MILLIGRAM, CYCLE
     Route: 042
     Dates: start: 20200214, end: 20200401
  3. CARBOPLATINE [Suspect]
     Active Substance: CARBOPLATIN
     Indication: METASTATIC BRONCHIAL CARCINOMA
     Dosage: 800 MILLIGRAM, CYCLE
     Route: 042
     Dates: start: 20200214, end: 20200330

REACTIONS (1)
  - Oesophageal fistula [Not Recovered/Not Resolved]

NARRATIVE: CASE EVENT DATE: 20200325
